FAERS Safety Report 21091858 (Version 4)
Quarter: 2022Q4

REPORT INFORMATION
  Report Type: Spontaneous
  Country: JP (occurrence: JP)
  Receive Date: 20220717
  Receipt Date: 20221007
  Transmission Date: 20230113
  Serious: Yes (Death, Hospitalization, Other)
  Sender: FDA-Public Use
  Company Number: JP-DSJP-DSJ-2022-119919

PATIENT
  Age: 71 Year
  Sex: Female

DRUGS (28)
  1. DENOSUMAB [Suspect]
     Active Substance: DENOSUMAB
     Indication: Osteoporosis
     Dosage: 60 MILLIGRAM
     Route: 058
     Dates: start: 20210420, end: 20220510
  2. PREDONINE [Suspect]
     Active Substance: PREDNISOLONE
     Indication: Rheumatoid arthritis
     Dosage: 5 MILLIGRAM, TID, AFTER EACH MEAL
     Route: 048
  3. PREDONINE [Suspect]
     Active Substance: PREDNISOLONE
     Dosage: 5 MILLIGRAM, QD
     Route: 048
  4. METHOTREXATE [Suspect]
     Active Substance: METHOTREXATE
     Indication: Rheumatoid arthritis
     Dosage: 4 MILLIGRAM, QWK, EVERY THURSDAY, BID, , AFTER BREAKFAST AND DINNER
     Route: 048
  5. FILGRASTIM [Concomitant]
     Active Substance: FILGRASTIM
     Indication: Autonomic nervous system imbalance
     Dosage: 50 MILLIGRAM, TID, AFTER EACH MEAL
     Route: 048
  6. FILGRASTIM [Concomitant]
     Active Substance: FILGRASTIM
     Dosage: 50 MG, TID, AFTER EACH MEAL
     Route: 048
  7. FILGRASTIM [Concomitant]
     Active Substance: FILGRASTIM
     Dosage: 50 UNK
     Route: 048
  8. FILGRASTIM [Concomitant]
     Active Substance: FILGRASTIM
     Dosage: 50 MILLIGRAM
     Route: 048
  9. SITAFLOXACIN [Concomitant]
     Active Substance: SITAFLOXACIN
     Dosage: 50 MILLIGRAM, BID, AFTER BREAKFAST AND DINNER
     Route: 065
  10. ACETAMINOPHEN [Concomitant]
     Active Substance: ACETAMINOPHEN
     Dosage: 400 MILLIGRAM, TID, AFTER BREAKFAST, LUNCH AND DINNER
     Route: 065
  11. NAPROXEN SODIUM [Concomitant]
     Active Substance: NAPROXEN SODIUM
     Dosage: 200 MILLIGRAM, TID, AFTER EACH MEAL
     Route: 048
  12. TEPRENONE [Concomitant]
     Active Substance: TEPRENONE
     Dosage: 0.5 GRAM, TID, AFTER EACH MEAL
     Route: 048
  13. UNSPECIFIED INGREDIENT [Concomitant]
     Active Substance: UNSPECIFIED INGREDIENT
     Dosage: 0.5 GRAM, TID, AFTER EACH MEAL
     Route: 048
  14. ENALAPRIL MALEATE [Concomitant]
     Active Substance: ENALAPRIL MALEATE
     Dosage: 5 MILLIGRAM, BID, AFTER BREAKFAST AND DINNER
     Route: 048
  15. ZilMlo [Concomitant]
     Dosage: 1 DOSAGE FORM, QD, AFTER BREAKFAST
     Route: 048
  16. LIMAPROST [Concomitant]
     Active Substance: LIMAPROST
     Indication: Spinal stenosis
     Dosage: 5 MICROGRAM, TID, AFTER EACH MEAL
     Route: 048
  17. MAGNESIUM OXIDE [Concomitant]
     Active Substance: MAGNESIUM OXIDE
     Dosage: 0.6 GRAM, TID, AFTER EACH MEAL
     Route: 048
  18. METHYLCOBALAMIN [Concomitant]
     Active Substance: METHYLCOBALAMIN
     Dosage: 500 MICROGRAM, TID, AFTER EACH MEAL
     Route: 048
  19. PREGABALIN [Concomitant]
     Active Substance: PREGABALIN
     Indication: Neuralgia
     Dosage: 50 MILLIGRAM, BID, AFTER BREAKFAST AND DINNER
     Route: 048
  20. DIETARY SUPPLEMENT\PROBIOTICS [Concomitant]
     Active Substance: DIETARY SUPPLEMENT\PROBIOTICS
     Dosage: 2 DOSAGE FORM, TID,  AFTER EACH MEAL
     Route: 048
  21. ISOSORBIDE DINITRATE [Concomitant]
     Active Substance: ISOSORBIDE DINITRATE
     Indication: Angina pectoris
     Dosage: 40 MILLIGRAM, QD, CHEST
  22. Voltarene [Concomitant]
     Dosage: 50 MILLIGRAM, USE ONE EVERY OTHER DAY FOR PAIN
     Route: 048
  23. GENTAMICIN SULFATE [Concomitant]
     Active Substance: GENTAMICIN SULFATE
     Dosage: AFFECTED AREA OF THE SACRUM, TID
     Route: 050
  24. Fad [Concomitant]
     Dosage: 1 DROP, TID, BOTH EYES
     Route: 047
  25. POPIDON [Concomitant]
     Dosage: UNK, QD, LEFT BUTTOCK PRESSURE ULCER
     Route: 050
  26. XYLOCAINE [Concomitant]
     Active Substance: LIDOCAINE HYDROCHLORIDE
     Indication: Pain
     Dosage: 36 MILLIGRAM, QD
     Route: 050
  27. TOFISOPAM [Concomitant]
     Active Substance: TOFISOPAM
     Indication: Autonomic nervous system imbalance
     Dosage: 50 MILLIGRAM, TID, AFTER EACH MEAL
     Route: 048
  28. AMLODIPINE BESYLATE\IRBESARTAN [Concomitant]
     Active Substance: AMLODIPINE BESYLATE\IRBESARTAN
     Indication: Hypertension
     Dosage: IRBESARTAN100MG AMLODIPINE10MG, QD
     Route: 048

REACTIONS (6)
  - Sepsis [Fatal]
  - Osteonecrosis of jaw [Fatal]
  - Osteomyelitis [Fatal]
  - Depression suicidal [Not Recovered/Not Resolved]
  - Periodontal disease [Unknown]
  - Dental caries [Unknown]

NARRATIVE: CASE EVENT DATE: 20220101
